FAERS Safety Report 6905998-5 (Version None)
Quarter: 2010Q3

REPORT INFORMATION
  Report Type: 
  Country: None (occurrence: None)
  Receive Date: 20100804
  Receipt Date: 20100624
  Transmission Date: 20110219
  Serious: Yes (Death, Hospitalization, Other)
  Sender: FDA-Public Use
  Company Number: US-BAXTER-2008BH010177

PATIENT
  Age: 77 Year
  Sex: Female
  Weight: 56 kg

DRUGS (26)
  1. HEPARIN SODIUM [Suspect]
     Indication: THROMBOSIS PROPHYLAXIS
     Route: 042
     Dates: start: 20071113, end: 20080113
  2. HEPARIN SODIUM [Suspect]
     Indication: THROMBOSIS
     Route: 042
     Dates: start: 20071113, end: 20080113
  3. HEPARIN SODIUM [Suspect]
     Route: 042
     Dates: start: 20071113, end: 20080113
  4. HEPARIN SODIUM [Suspect]
     Route: 042
     Dates: start: 20071113, end: 20080113
  5. HEPARIN SODIUM [Suspect]
     Route: 058
     Dates: start: 20071114, end: 20071115
  6. HEPARIN SODIUM [Suspect]
     Route: 058
     Dates: start: 20071114, end: 20071115
  7. HEPARIN SODIUM [Suspect]
     Route: 040
     Dates: start: 20071212, end: 20071212
  8. HEPARIN SODIUM [Suspect]
     Route: 040
     Dates: start: 20071212, end: 20071212
  9. HEPARIN SODIUM [Suspect]
     Route: 042
     Dates: start: 20071113, end: 20080113
  10. HEPARIN SODIUM [Suspect]
     Route: 042
     Dates: start: 20071113, end: 20080113
  11. HEPARIN SODIUM [Suspect]
     Route: 058
     Dates: start: 20071125, end: 20071127
  12. HEPARIN SODIUM [Suspect]
     Route: 058
     Dates: start: 20071125, end: 20071127
  13. HEPARIN SODIUM [Suspect]
     Route: 040
     Dates: start: 20071212, end: 20071212
  14. HEPARIN SODIUM [Suspect]
     Route: 040
     Dates: start: 20071212, end: 20071212
  15. HEPARIN SODIUM 5,000 UNITS IN DEXTROSE 5% [Suspect]
     Indication: THROMBOSIS PROPHYLAXIS
     Route: 041
     Dates: start: 20071212
  16. WARFARIN SODIUM [Concomitant]
     Indication: PRODUCT USED FOR UNKNOWN INDICATION
     Route: 065
  17. XANAX [Concomitant]
     Indication: PRODUCT USED FOR UNKNOWN INDICATION
     Route: 065
  18. REMERON [Concomitant]
     Indication: PRODUCT USED FOR UNKNOWN INDICATION
     Route: 065
  19. NORVASC [Concomitant]
     Indication: PRODUCT USED FOR UNKNOWN INDICATION
     Route: 065
  20. NORVASC [Concomitant]
     Route: 065
  21. ASPIRINE [Concomitant]
     Indication: PRODUCT USED FOR UNKNOWN INDICATION
     Route: 065
  22. AZITHROMYCIN [Concomitant]
     Indication: PRODUCT USED FOR UNKNOWN INDICATION
     Route: 065
  23. CEFTRIAXONE [Concomitant]
     Indication: PRODUCT USED FOR UNKNOWN INDICATION
     Route: 065
  24. REMERON [Concomitant]
     Route: 065
  25. COMBIVENT                               /GFR/ [Concomitant]
     Indication: PRODUCT USED FOR UNKNOWN INDICATION
     Route: 065
  26. PREDNISONE [Concomitant]
     Indication: PRODUCT USED FOR UNKNOWN INDICATION
     Route: 065

REACTIONS (19)
  - ANXIETY [None]
  - ATRIAL FIBRILLATION [None]
  - BREAST CANCER [None]
  - DEEP VEIN THROMBOSIS [None]
  - DIARRHOEA [None]
  - DIZZINESS [None]
  - DYSARTHRIA [None]
  - DYSPHAGIA [None]
  - HAEMATOCHEZIA [None]
  - HYPONATRAEMIA [None]
  - HYPOTENSION [None]
  - LETHARGY [None]
  - MENTAL STATUS CHANGES [None]
  - PLEURAL EFFUSION [None]
  - PNEUMOTHORAX [None]
  - PULMONARY HYPERTENSION [None]
  - SCLERODERMA [None]
  - SEPSIS [None]
  - WHEEZING [None]
